FAERS Safety Report 5230448-7 (Version None)
Quarter: 2007Q1

REPORT INFORMATION
  Report Type: 
  Country: None (occurrence: None)
  Receive Date: 20070206
  Receipt Date: 20070124
  Transmission Date: 20070707
  Serious: Yes (Other)
  Sender: FDA-Public Use
  Company Number: FR-ELI_LILLY_AND_COMPANY-FR200701000808

PATIENT
  Age: 65 Year
  Sex: Female

DRUGS (1)
  1. FORTEO [Suspect]
     Indication: OSTEOPOROSIS
     Dosage: 20 UG, DAILY (1/D)
     Route: 058
     Dates: start: 20060719

REACTIONS (14)
  - ABDOMINAL PAIN UPPER [None]
  - ARTHRALGIA [None]
  - BACK PAIN [None]
  - CHEST PAIN [None]
  - CONSTIPATION [None]
  - HAEMORRHOIDS [None]
  - HEADACHE [None]
  - MIGRAINE [None]
  - OESOPHAGEAL DISORDER [None]
  - PAIN [None]
  - PAIN IN JAW [None]
  - RASH [None]
  - WEIGHT DECREASED [None]
  - WEIGHT INCREASED [None]
